FAERS Safety Report 4387841-4 (Version None)
Quarter: 2004Q2

REPORT INFORMATION
  Report Type: 
  Country: None (occurrence: None)
  Receive Date: 20040623
  Receipt Date: 20040603
  Transmission Date: 20050107
  Serious: Yes (Hospitalization)
  Sender: FDA-Public Use
  Company Number: USA040669218

PATIENT
  Sex: Female

DRUGS (2)
  1. VANCOCIN HCL [Suspect]
     Indication: CLOSTRIDIAL INFECTION
     Dosage: 500 MG/DAY
  2. FLAGYL [Concomitant]

REACTIONS (5)
  - CLOSTRIDIUM COLITIS [None]
  - CONSTIPATION [None]
  - DISEASE RECURRENCE [None]
  - FAECES HARD [None]
  - HAEMORRHOIDS [None]
